FAERS Safety Report 11200288 (Version 2)
Quarter: 2015Q3

REPORT INFORMATION
  Report Type: Report from Study
  Country: AR (occurrence: AR)
  Receive Date: 20150618
  Receipt Date: 20150701
  Transmission Date: 20151125
  Serious: Yes (Hospitalization)
  Sender: FDA-Public Use
  Company Number: PHHY2015AR069078

PATIENT
  Sex: Female
  Weight: 90 kg

DRUGS (4)
  1. DIOVAN [Suspect]
     Active Substance: VALSARTAN
     Dosage: 1 DF, QD
     Route: 065
  2. DIOVAN D [Suspect]
     Active Substance: HYDROCHLOROTHIAZIDE\VALSARTAN
     Indication: HYPERTENSION
     Dosage: 1 DF, QD
     Route: 065
  3. DIOVAN [Suspect]
     Active Substance: VALSARTAN
     Indication: HYPERTENSION
     Dosage: 160 MG, QD
     Route: 065
  4. ALPRAZOLAM. [Concomitant]
     Active Substance: ALPRAZOLAM
     Indication: PRODUCT USED FOR UNKNOWN INDICATION
     Route: 065

REACTIONS (18)
  - Stress [Unknown]
  - Syncope [Unknown]
  - Gait disturbance [Unknown]
  - Poor quality sleep [Unknown]
  - Peripheral swelling [Unknown]
  - Osteoarthritis [Unknown]
  - Ear pain [Unknown]
  - Arrhythmia [Unknown]
  - Emotional disorder [Unknown]
  - Blood potassium decreased [Unknown]
  - Memory impairment [Unknown]
  - Dilatation ventricular [Unknown]
  - Blood pressure increased [Unknown]
  - Blood pressure decreased [Unknown]
  - Tinnitus [Unknown]
  - Hypokinesia [Unknown]
  - Weight increased [Unknown]
  - Speech disorder [Unknown]
